FAERS Safety Report 6583789-5 (Version None)
Quarter: 2010Q1

REPORT INFORMATION
  Report Type: 
  Country: None (occurrence: None)
  Receive Date: 20100216
  Receipt Date: 20091116
  Transmission Date: 20100710
  Serious: No
  Sender: FDA-Public Use
  Company Number: US-ABBOTT-09P-163-0609666-00

PATIENT
  Sex: Female
  Weight: 51.302 kg

DRUGS (2)
  1. SIMCOR [Suspect]
     Indication: HIGH DENSITY LIPOPROTEIN
     Dates: start: 20090601, end: 20090901
  2. SIMCOR [Suspect]
     Indication: LOW DENSITY LIPOPROTEIN
     Dates: end: 20090601

REACTIONS (5)
  - COELIAC DISEASE [None]
  - FLUSHING [None]
  - HIGH DENSITY LIPOPROTEIN INCREASED [None]
  - LOW DENSITY LIPOPROTEIN INCREASED [None]
  - RASH [None]
